FAERS Safety Report 25404977 (Version 1)
Quarter: 2025Q2

REPORT INFORMATION
  Report Type: Spontaneous
  Country: DE (occurrence: DE)
  Receive Date: 20250606
  Receipt Date: 20250606
  Transmission Date: 20250716
  Serious: Yes (Hospitalization)
  Sender: ORGANON
  Company Number: None

PATIENT
  Sex: Male
  Weight: 99 kg

DRUGS (3)
  1. ATORVASTATIN\EZETIMIBE [Suspect]
     Active Substance: ATORVASTATIN\EZETIMIBE
     Dates: start: 202403, end: 20240723
  2. SIMVASTATIN [Suspect]
     Active Substance: SIMVASTATIN
     Dates: end: 20240911
  3. AMLODIPINE [Suspect]
     Active Substance: AMLODIPINE BESYLATE

REACTIONS (3)
  - Drug-induced liver injury [Not Recovered/Not Resolved]
  - Duplicate therapy error [Not Recovered/Not Resolved]
  - Product communication issue [Not Recovered/Not Resolved]
